FAERS Safety Report 23733701 (Version 1)
Quarter: 2024Q2

REPORT INFORMATION
  Report Type: Report from Study
  Country: US (occurrence: US)
  Receive Date: 20240411
  Receipt Date: 20240411
  Transmission Date: 20240716
  Serious: Yes (Hospitalization, Other)
  Sender: FDA-Public Use
  Company Number: US-ABBVIE-5710328

PATIENT
  Sex: Female

DRUGS (1)
  1. HUMIRA [Suspect]
     Active Substance: ADALIMUMAB
     Indication: Product used for unknown indication
     Dosage: FORM STRENGTH: 40 MILLIGRAM
     Route: 058
     Dates: start: 20140515

REACTIONS (7)
  - Loss of consciousness [Unknown]
  - Blood potassium decreased [Recovered/Resolved]
  - Gastric ulcer [Unknown]
  - Arthritis [Unknown]
  - Migraine [Not Recovered/Not Resolved]
  - Gastritis [Unknown]
  - Blood potassium decreased [Unknown]
